FAERS Safety Report 21018677 (Version 1)
Quarter: 2022Q2

REPORT INFORMATION
  Report Type: Spontaneous
  Country: US (occurrence: US)
  Receive Date: 20220628
  Receipt Date: 20220628
  Transmission Date: 20220721
  Serious: Yes (Death)
  Sender: FDA-Public Use
  Company Number: US-PFIZER INC-202200611516

PATIENT
  Age: 80 Year
  Sex: Male
  Weight: 72.57 kg

DRUGS (1)
  1. VYNDAMAX [Suspect]
     Active Substance: TAFAMIDIS
     Indication: Amyloidosis
     Dosage: 61 MG
     Dates: start: 2022

REACTIONS (2)
  - Chronic obstructive pulmonary disease [Fatal]
  - Off label use [Unknown]

NARRATIVE: CASE EVENT DATE: 20220101
